FAERS Safety Report 6198964-1 (Version None)
Quarter: 2009Q2

REPORT INFORMATION
  Report Type: 
  Country: None (occurrence: None)
  Receive Date: 20090522
  Receipt Date: 20090512
  Transmission Date: 20091009
  Serious: Yes (Hospitalization, Disabling, Other)
  Sender: FDA-Public Use
  Company Number: FR-JNJFOC-20070504227

PATIENT
  Age: 26 Year
  Sex: Male
  Weight: 45 kg

DRUGS (2)
  1. INFLIXIMAB [Suspect]
     Indication: CROHN'S DISEASE
     Route: 042
  2. AZATHIAPRINE [Concomitant]
     Indication: CROHN'S DISEASE

REACTIONS (3)
  - GASTROINTESTINAL MOTILITY DISORDER [None]
  - INTESTINAL STENOSIS [None]
  - MALNUTRITION [None]
